FAERS Safety Report 6012645-6 (Version None)
Quarter: 2008Q4

REPORT INFORMATION
  Report Type: 
  Country: None (occurrence: None)
  Receive Date: 20081217
  Receipt Date: 20081208
  Transmission Date: 20090506
  Serious: Yes (Hospitalization)
  Sender: FDA-Public Use
  Company Number: 6047595

PATIENT
  Age: 60 Year
  Sex: Female

DRUGS (2)
  1. BISOPROLOL                     (BISOPROLOL FUMARATE) [Suspect]
     Indication: HYPERTENSION
     Dosage: ORAL
     Route: 048
     Dates: start: 20081202
  2. LODOZ (TABLET) (HYDROCHLOROTHIAZIDE, BISOPROLOL FUMARATE) [Concomitant]

REACTIONS (3)
  - ATRIOVENTRICULAR BLOCK COMPLETE [None]
  - DRUG DISPENSING ERROR [None]
  - LOSS OF CONSCIOUSNESS [None]
